FAERS Safety Report 10540954 (Version 5)
Quarter: 2015Q1

REPORT INFORMATION
  Report Type: Spontaneous
  Country: NO (occurrence: NO)
  Receive Date: 20141024
  Receipt Date: 20150115
  Transmission Date: 20150720
  Serious: Yes (Other)
  Sender: FDA-Public Use
  Company Number: NO-PFIZER INC-2014289878

PATIENT
  Age: 61 Year
  Sex: Female

DRUGS (9)
  1. METRONIDAZOLE. [Concomitant]
     Active Substance: METRONIDAZOLE
     Indication: CHOLANGITIS
  2. VANCOMYCIN [Concomitant]
     Active Substance: VANCOMYCIN
     Indication: CHILLS
  3. MEROPENEM. [Suspect]
     Active Substance: MEROPENEM
     Indication: ANTIBIOTIC THERAPY
  4. MEROPENEM. [Suspect]
     Active Substance: MEROPENEM
     Indication: PYREXIA
  5. VANCOMYCIN [Concomitant]
     Active Substance: VANCOMYCIN
     Indication: MALAISE
  6. PIPERACILLIN/TAZOBACTAM [Suspect]
     Active Substance: PIPERACILLIN SODIUM\TAZOBACTAM SODIUM
     Indication: ANTIBIOTIC THERAPY
  7. VANCOMYCIN [Concomitant]
     Active Substance: VANCOMYCIN
     Indication: PYREXIA
  8. MEROPENEM. [Suspect]
     Active Substance: MEROPENEM
     Indication: CHILLS
  9. CEFOTAXIME [Suspect]
     Active Substance: CEFOTAXIME\CEFOTAXIME SODIUM
     Indication: CHOLANGITIS

REACTIONS (2)
  - Pathogen resistance [None]
  - Enterococcal bacteraemia [Unknown]
